FAERS Safety Report 20021676 (Version 2)
Quarter: 2022Q1

REPORT INFORMATION
  Report Type: Spontaneous
  Country: US (occurrence: US)
  Receive Date: 20211101
  Receipt Date: 20220217
  Transmission Date: 20220423
  Serious: No
  Sender: FDA-Public Use
  Company Number: US-BRISTOL-MYERS SQUIBB COMPANY-BMS-2021-112791

PATIENT
  Age: 65 Year
  Sex: Female

DRUGS (1)
  1. ORENCIA [Suspect]
     Active Substance: ABATACEPT
     Indication: Rheumatoid arthritis
     Dosage: 125 MILLIGRAM, QWK
     Route: 058

REACTIONS (9)
  - Dizziness [Unknown]
  - Feeling abnormal [Unknown]
  - Condition aggravated [Unknown]
  - Pain [Unknown]
  - Restless legs syndrome [Unknown]
  - Gout [Unknown]
  - Dyspnoea [Unknown]
  - Vitamin B1 decreased [Unknown]
  - Fall [Unknown]
